FAERS Safety Report 5262413-8 (Version None)
Quarter: 2007Q1

REPORT INFORMATION
  Report Type: 
  Country: None (occurrence: None)
  Receive Date: 20070309
  Receipt Date: 20070309
  Transmission Date: 20070707
  Serious: Yes (Life-Threatening, Hospitalization, Disabling)
  Sender: FDA-Public Use
  Company Number: None

PATIENT
  Age: 87 Year
  Sex: Male
  Weight: 74.8435 kg

DRUGS (1)
  1. DILAUDID [Suspect]
     Indication: PAIN
     Dates: start: 20070306, end: 20070306

REACTIONS (1)
  - CARDIO-RESPIRATORY ARREST [None]
